FAERS Safety Report 16072650 (Version 3)
Quarter: 2019Q3

REPORT INFORMATION
  Report Type: Spontaneous
  Country: DE (occurrence: DE)
  Receive Date: 20190314
  Receipt Date: 20190919
  Transmission Date: 20191004
  Serious: Yes (Hospitalization)
  Sender: FDA-Public Use
  Company Number: DE-TEVA-2019-DE-1022810

PATIENT
  Age: 60 Year
  Sex: Male
  Weight: 81 kg

DRUGS (12)
  1. SALBUTAMOL [Concomitant]
     Active Substance: ALBUTEROL
  2. EZETROL 10 MG [Concomitant]
     Active Substance: EZETIMIBE
  3. CETIRIZINE [Concomitant]
     Active Substance: CETIRIZINE HYDROCHLORIDE
  4. VIANI FORTE 50 UG/500 UG [Concomitant]
     Dosage: 1-0-1
  5. OMACOR 1000 MG [Concomitant]
     Dosage: 1-0-1
  6. VALSARTAN 160 MG [Concomitant]
     Active Substance: VALSARTAN
     Dosage: 1/2-0-1/2
  7. ESOMEPRAZOLE 20 MG [Concomitant]
     Active Substance: ESOMEPRAZOLE
  8. HCT 12.5 MG [Concomitant]
     Dosage: 1/2-0-0
  9. NITROLINGUAL [Concomitant]
     Active Substance: NITROGLYCERIN
  10. ASS 100 [Concomitant]
     Active Substance: ASPIRIN
     Dosage: 0-0-1
  11. ROSUVASTATIN. [Suspect]
     Active Substance: ROSUVASTATIN
     Indication: HYPERCHOLESTEROLAEMIA
     Route: 048
     Dates: start: 20180411, end: 20180416
  12. RANEXA 375 MG [Concomitant]
     Dosage: 1-0-1

REACTIONS (3)
  - Myasthenia gravis [Recovering/Resolving]
  - Rhabdomyolysis [Recovering/Resolving]
  - Myopathy [Unknown]

NARRATIVE: CASE EVENT DATE: 201804
